FAERS Safety Report 13960224 (Version 1)
Quarter: 2017Q3

REPORT INFORMATION
  Report Type: Spontaneous
  Country: CH (occurrence: CH)
  Receive Date: 20170912
  Receipt Date: 20170912
  Transmission Date: 20171128
  Serious: Yes (Hospitalization, Other)
  Sender: FDA-Public Use
  Company Number: CH-PFIZER INC-2017393446

PATIENT
  Age: 76 Year
  Sex: Male

DRUGS (5)
  1. ADALAT CRONO [Concomitant]
     Active Substance: NIFEDIPINE
     Dosage: UNK
  2. CORDARONE [Suspect]
     Active Substance: AMIODARONE HYDROCHLORIDE
     Dosage: 200 MG, DAILY
     Route: 048
     Dates: end: 20170806
  3. ATORVASTATIN PFIZER [Concomitant]
     Active Substance: ATORVASTATIN
     Dosage: UNK
  4. SINTROM [Interacting]
     Active Substance: ACENOCOUMAROL
     Dosage: UNK UNK, DAILY
     Route: 048
  5. COSAAR PLUS [Concomitant]
     Active Substance: HYDROCHLOROTHIAZIDE\LOSARTAN

REACTIONS (9)
  - Drug interaction [Unknown]
  - Epistaxis [Recovered/Resolved]
  - Face injury [Unknown]
  - Electrocardiogram QT prolonged [Recovering/Resolving]
  - Fall [Unknown]
  - Gastroenteritis [Unknown]
  - Hypokalaemia [Unknown]
  - International normalised ratio increased [Recovered/Resolved]
  - Hyponatraemia [Unknown]

NARRATIVE: CASE EVENT DATE: 20170805
